FAERS Safety Report 20729068 (Version 7)
Quarter: 2022Q4

REPORT INFORMATION
  Report Type: Spontaneous
  Country: CA (occurrence: CA)
  Receive Date: 20220420
  Receipt Date: 20221227
  Transmission Date: 20230112
  Serious: Yes (Other)
  Sender: FDA-Public Use
  Company Number: CA-CELLTRION INC.-2022CA004813

PATIENT

DRUGS (10)
  1. INFLECTRA [Suspect]
     Active Substance: INFLIXIMAB-DYYB
     Indication: Crohn^s disease
     Dosage: 800 MG, INDUCTION Q 0, 2, 6, THEN Q 8 WEEKS
     Route: 042
     Dates: start: 20220325
  2. INFLECTRA [Suspect]
     Active Substance: INFLIXIMAB-DYYB
     Dosage: 800 MG, INDUCTION Q 0, 2, 6, THEN Q 8 WEEKS
     Route: 042
     Dates: start: 20220325
  3. INFLECTRA [Suspect]
     Active Substance: INFLIXIMAB-DYYB
     Dosage: 800 MG, INDUCTION Q 0, 2, 6, THEN Q 8 WEEKS
     Route: 042
     Dates: start: 20220406
  4. INFLECTRA [Suspect]
     Active Substance: INFLIXIMAB-DYYB
     Dosage: 800 MG, INDUCTION Q 0, 2, 6, THEN Q 8 WEEKS
     Route: 042
     Dates: start: 20220406
  5. INFLECTRA [Suspect]
     Active Substance: INFLIXIMAB-DYYB
     Dosage: 800 MG, INDUCTIONQ 0, 2, 6, THEN Q 8 WEEKS
     Route: 042
     Dates: start: 20220504
  6. INFLECTRA [Suspect]
     Active Substance: INFLIXIMAB-DYYB
     Dosage: 800 MG, INDUCTION Q 0, 2, 6, THEN Q 8 WEEKS
     Route: 042
     Dates: start: 20220504
  7. INFLECTRA [Suspect]
     Active Substance: INFLIXIMAB-DYYB
     Dosage: 800 MG, INDUCTION Q 0, 2, 6, THEN Q 8 WEEKS
     Route: 042
     Dates: start: 20220705
  8. INFLECTRA [Suspect]
     Active Substance: INFLIXIMAB-DYYB
     Dosage: 800 MG, INDUCTION Q 0, 2, 6, THEN Q 8 WEEKS
     Route: 042
     Dates: start: 20220825
  9. INFLECTRA [Suspect]
     Active Substance: INFLIXIMAB-DYYB
     Dosage: 800 MG, INDUCTION Q 0, 2, 6, THEN Q 8 WEEKS
     Route: 042
     Dates: start: 20221020
  10. INFLECTRA [Suspect]
     Active Substance: INFLIXIMAB-DYYB
     Dosage: 800 MG, INDUCTION Q 0, 2, 6, THEN Q 8 WEEKS
     Route: 042
     Dates: start: 20221215

REACTIONS (7)
  - Urinary tract infection [Recovered/Resolved]
  - Off label use [Unknown]
  - Off label use [Unknown]
  - Intentional product use issue [Unknown]
  - Dizziness [Recovered/Resolved]
  - Nausea [Recovered/Resolved]
  - COVID-19 [Not Recovered/Not Resolved]

NARRATIVE: CASE EVENT DATE: 20220325
